FAERS Safety Report 7222915-1 (Version None)
Quarter: 2011Q1

REPORT INFORMATION
  Report Type: 
  Country: None (occurrence: None)
  Receive Date: 20110106
  Receipt Date: 20110106
  Transmission Date: 20110831
  Serious: Yes (Hospitalization)
  Sender: FDA-Public Use
  Company Number: None

PATIENT
  Age: 61 Year
  Sex: Male
  Weight: 116 kg

DRUGS (5)
  1. NIASPAN [Concomitant]
  2. BACTRIM DS [Suspect]
     Indication: CELLULITIS
     Dosage: ONE BID PO RECENT
     Route: 048
  3. ALEVE [Concomitant]
  4. ATENOLOL [Concomitant]
  5. DIOVAN HCT [Concomitant]

REACTIONS (4)
  - BLOOD POTASSIUM INCREASED [None]
  - RENAL FAILURE ACUTE [None]
  - HYPOPHAGIA [None]
  - BLOOD BICARBONATE DECREASED [None]
